FAERS Safety Report 9792051 (Version 1)
Quarter: 2014Q1

REPORT INFORMATION
  Report Type: Spontaneous
  Country: US (occurrence: US)
  Receive Date: 20140102
  Receipt Date: 20140102
  Transmission Date: 20141002
  Serious: Yes (Hospitalization)
  Sender: FDA-Public Use
  Company Number: US-AMGEN-USASP2013091399

PATIENT
  Age: 41 Year
  Sex: Female

DRUGS (17)
  1. PROLIA [Suspect]
     Indication: VITAMIN D DEFICIENCY
     Dosage: UNK UNK, QMO
     Route: 065
  2. MORPHINE [Concomitant]
  3. OXYCODONE [Concomitant]
  4. XANAX [Concomitant]
  5. ZOLOFT [Concomitant]
  6. EFFEXOR [Concomitant]
  7. TRAZODONE [Concomitant]
  8. CLONOPIN [Concomitant]
  9. MELOXICAM [Concomitant]
  10. ZANAFLEX [Concomitant]
  11. OMEPRAZOLE [Concomitant]
  12. SINGULAIR [Concomitant]
  13. ZYRTEC [Concomitant]
  14. VOLTAREN                           /00372301/ [Concomitant]
  15. FIORICET [Concomitant]
  16. BOTOX [Concomitant]
     Indication: MIGRAINE
  17. TOPAMAX [Concomitant]

REACTIONS (4)
  - Pleurisy [Unknown]
  - Hypoaesthesia [Unknown]
  - Abdominal pain upper [Unknown]
  - Inappropriate schedule of drug administration [Unknown]
